FAERS Safety Report 7199175-3 (Version None)
Quarter: 2010Q4

REPORT INFORMATION
  Report Type: 
  Country: None (occurrence: None)
  Receive Date: 20101215
  Receipt Date: 20101119
  Transmission Date: 20110411
  Serious: Yes (Hospitalization)
  Sender: FDA-Public Use
  Company Number: 021302

PATIENT
  Sex: Female

DRUGS (4)
  1. CIMZIA [Suspect]
     Dosage: (SUBCUTANEOUS)
     Route: 058
     Dates: start: 20100626
  2. ASACOL [Concomitant]
  3. PREDNISONE [Concomitant]
  4. ENTOCORT EC [Concomitant]

REACTIONS (1)
  - SMALL INTESTINAL OBSTRUCTION [None]
